FAERS Safety Report 22172415 (Version 2)
Quarter: 2023Q4

REPORT INFORMATION
  Report Type: Spontaneous
  Country: CN (occurrence: CN)
  Receive Date: 20230404
  Receipt Date: 20231006
  Transmission Date: 20240110
  Serious: Yes (Life-Threatening)
  Sender: FDA-Public Use
  Company Number: CN-BAYER-2023A043673

PATIENT
  Age: 33 Year
  Sex: Male
  Weight: 75 kg

DRUGS (1)
  1. ULTRAVIST [Suspect]
     Active Substance: IOPROMIDE
     Indication: Scan with contrast
     Dosage: 80 ML, ONCE
     Route: 042
     Dates: start: 20230323, end: 20230323

REACTIONS (4)
  - Anaphylactic shock [Recovering/Resolving]
  - Flushing [Recovering/Resolving]
  - Syncope [Recovering/Resolving]
  - Blood pressure immeasurable [Recovering/Resolving]

NARRATIVE: CASE EVENT DATE: 20230323
